FAERS Safety Report 4376677-6 (Version None)
Quarter: 2004Q2

REPORT INFORMATION
  Report Type: 
  Country: None (occurrence: None)
  Receive Date: 20040608
  Receipt Date: 20040525
  Transmission Date: 20050107
  Serious: Yes (Hospitalization)
  Sender: FDA-Public Use
  Company Number: 04P-163-0262072-00

PATIENT
  Age: 25 Year
  Sex: Female

DRUGS (7)
  1. ULTANE [Suspect]
     Indication: ANAESTHESIA
     Dosage: 2-3 PERCENT, ONCE, INHALATION
     Route: 055
     Dates: start: 20040524, end: 20040524
  2. OXYGEN [Concomitant]
  3. PROPOFOL [Concomitant]
  4. FENTANYL [Concomitant]
  5. AKALAID [Concomitant]
  6. FLUTICASONE PROPIONATE [Concomitant]
  7. ADVAIR DISKUS 100/50 [Concomitant]

REACTIONS (10)
  - ANAESTHETIC COMPLICATION [None]
  - APNOEA [None]
  - CHILLS [None]
  - CONVULSION [None]
  - EYE ROLLING [None]
  - NERVOUS SYSTEM DISORDER [None]
  - PAIN [None]
  - POST PROCEDURAL COMPLICATION [None]
  - RESPIRATORY ALKALOSIS [None]
  - TREMOR [None]
